FAERS Safety Report 15846682 (Version 9)
Quarter: 2019Q2

REPORT INFORMATION
  Report Type: Spontaneous
  Country: US (occurrence: US)
  Receive Date: 20190121
  Receipt Date: 20190509
  Transmission Date: 20190711
  Serious: Yes (Death, Life-Threatening, Hospitalization, Other)
  Sender: FDA-Public Use
  Company Number: US-CELGENEUS-USA-20190103158

PATIENT
  Age: 80 Year
  Sex: Female

DRUGS (1)
  1. POMALYST [Suspect]
     Active Substance: POMALIDOMIDE
     Indication: PLASMA CELL MYELOMA
     Dosage: 4 MILLIGRAM
     Route: 048
     Dates: start: 20181217, end: 20190115

REACTIONS (7)
  - Diarrhoea [Not Recovered/Not Resolved]
  - Streptococcal bacteraemia [Unknown]
  - Arthritis bacterial [Recovering/Resolving]
  - Upper respiratory tract infection [Unknown]
  - Urinary tract infection [Unknown]
  - Dry mouth [Unknown]
  - Plasma cell myeloma [Fatal]

NARRATIVE: CASE EVENT DATE: 201812
